FAERS Safety Report 6720669-6 (Version None)
Quarter: 2010Q2

REPORT INFORMATION
  Report Type: 
  Country: None (occurrence: None)
  Receive Date: 20100510
  Receipt Date: 20100430
  Transmission Date: 20101027
  Serious: Yes (Death)
  Sender: FDA-Public Use
  Company Number: 20108589

PATIENT
  Age: 62 Year
  Sex: Female

DRUGS (3)
  1. LIORESAL [Suspect]
     Indication: MUSCLE SPASTICITY
     Dosage: MCG, DAILY, INTRATHECAL
     Route: 037
  2. HYDROMORPHON [Concomitant]
  3. CLONIDINE [Concomitant]

REACTIONS (3)
  - HEPATIC FAILURE [None]
  - PNEUMONIA [None]
  - RENAL FAILURE [None]
